FAERS Safety Report 17798169 (Version 1)
Quarter: 2020Q2

REPORT INFORMATION
  Report Type: Spontaneous
  Country: US (occurrence: US)
  Receive Date: 20200517
  Receipt Date: 20200517
  Transmission Date: 20200714
  Serious: Yes (Disabling)
  Sender: FDA-Public Use
  Company Number: None

PATIENT
  Age: 85 Year
  Sex: Female
  Weight: 46.35 kg

DRUGS (2)
  1. CLINDAMYCIN (300 MG, BLUISH-GREEN CAPSULES) [Suspect]
     Active Substance: CLINDAMYCIN HYDROCHLORIDE
     Indication: DENTAL OPERATION
     Dosage: ?          QUANTITY:1 CAPSULE(S);?
     Route: 048
     Dates: start: 20200505, end: 20200508
  2. AMOXICILLIN. [Concomitant]
     Active Substance: AMOXICILLIN

REACTIONS (4)
  - Chest discomfort [None]
  - Nasal oedema [None]
  - Lip swelling [None]
  - Abdominal discomfort [None]

NARRATIVE: CASE EVENT DATE: 20200505
